FAERS Safety Report 15213685 (Version 1)
Quarter: 2018Q3

REPORT INFORMATION
  Report Type: Spontaneous
  Country: GB (occurrence: GB)
  Receive Date: 20180730
  Receipt Date: 20180730
  Transmission Date: 20181010
  Serious: Yes (Other)
  Sender: FDA-Public Use
  Company Number: GB-AUROBINDO-AUR-APL-2018-034584

PATIENT
  Age: 19 Year
  Sex: Female

DRUGS (2)
  1. FINASTERIDE. [Suspect]
     Active Substance: FINASTERIDE
     Indication: GENDER REASSIGNMENT THERAPY
     Dosage: UNK
     Route: 048
  2. ESTRADIOL. [Suspect]
     Active Substance: ESTRADIOL
     Indication: GENDER REASSIGNMENT THERAPY
     Dosage: UNK
     Route: 065

REACTIONS (6)
  - Trans-sexualism [Unknown]
  - Product use issue [Unknown]
  - Borderline personality disorder [Unknown]
  - Affect lability [Unknown]
  - Intentional product misuse [Unknown]
  - Product use in unapproved indication [Unknown]
